FAERS Safety Report 9272272 (Version 1)
Quarter: 2013Q2

REPORT INFORMATION
  Report Type: Spontaneous
  Country: US (occurrence: US)
  Receive Date: 20130506
  Receipt Date: 20130506
  Transmission Date: 20140414
  Serious: Yes (Hospitalization)
  Sender: FDA-Public Use
  Company Number: PHEH2013US009432

PATIENT
  Sex: Male

DRUGS (2)
  1. FOCALIN XR [Suspect]
     Dosage: 20 MG, QD
  2. FOCALIN XR [Suspect]
     Dosage: 10 MG, UNK

REACTIONS (2)
  - Agitation [Unknown]
  - Performance status decreased [Unknown]
